FAERS Safety Report 9198300 (Version 1)
Quarter: 2013Q1

REPORT INFORMATION
  Report Type: Spontaneous
  Country: US (occurrence: US)
  Receive Date: 20130329
  Receipt Date: 20130329
  Transmission Date: 20140127
  Serious: No
  Sender: FDA-Public Use
  Company Number: US-BIOGENIDEC-2013BI027948

PATIENT
  Sex: Male

DRUGS (7)
  1. TYSABRI [Suspect]
     Indication: MULTIPLE SCLEROSIS
     Route: 042
     Dates: start: 200906, end: 200907
  2. AVONEX [Concomitant]
     Indication: MULTIPLE SCLEROSIS
     Route: 030
     Dates: start: 20070510, end: 20090601
  3. CRAMP RELIEF CREAM (NOS) [Concomitant]
     Indication: MUSCLE SPASMS
  4. CRAMP RELIEF CREAM (NOS) [Concomitant]
     Indication: MUSCLE SPASMS
  5. NAPROXEN [Concomitant]
     Indication: PAIN IN EXTREMITY
  6. NAPROXEN [Concomitant]
     Indication: PAIN IN EXTREMITY
  7. MEDICINAL MARIJUANA [Concomitant]
     Indication: WEIGHT DECREASED

REACTIONS (1)
  - Gait disturbance [Not Recovered/Not Resolved]
